FAERS Safety Report 4558055-X (Version None)
Quarter: 2005Q1

REPORT INFORMATION
  Report Type: 
  Country: None (occurrence: None)
  Receive Date: 20050121
  Receipt Date: 20040712
  Transmission Date: 20050727
  Serious: No
  Sender: FDA-Public Use
  Company Number: US-BRISTOL-MYERS SQUIBB COMPANY-12646055

PATIENT
  Age: 52 Year
  Sex: Female

DRUGS (6)
  1. SERZONE [Suspect]
     Indication: DEPRESSION
     Dates: start: 20000203, end: 20020506
  2. XANAX [Suspect]
     Indication: SLEEP DISORDER
  3. LUVOX [Concomitant]
  4. MAXZIDE [Concomitant]
  5. CELEBREX [Concomitant]
  6. NAPROXEN [Concomitant]

REACTIONS (5)
  - ALANINE AMINOTRANSFERASE INCREASED [None]
  - ASPARTATE AMINOTRANSFERASE INCREASED [None]
  - BLOOD ALKALINE PHOSPHATASE INCREASED [None]
  - DIARRHOEA [None]
  - DIZZINESS [None]
